FAERS Safety Report 5145124-9 (Version None)
Quarter: 2006Q4

REPORT INFORMATION
  Report Type: 
  Country: None (occurrence: None)
  Receive Date: 20061107
  Receipt Date: 20061031
  Transmission Date: 20070319
  Serious: Yes (Other)
  Sender: FDA-Public Use
  Company Number: US-JNJFOC-20060601862

PATIENT
  Sex: Female
  Weight: 54.43 kg

DRUGS (3)
  1. TOPAMAX [Suspect]
     Indication: MIGRAINE
     Dosage: THREE 25 MG TABLETS TWICE DAILY
  2. VICODIN [Concomitant]
     Indication: MIGRAINE
  3. AMITRIPTYLINE HCL [Concomitant]
     Indication: MIGRAINE
     Dosage: AT BEDTIME

REACTIONS (6)
  - CONFUSIONAL STATE [None]
  - DIZZINESS [None]
  - DYSSTASIA [None]
  - LOSS OF CONSCIOUSNESS [None]
  - SYNCOPE [None]
  - TEMPERATURE REGULATION DISORDER [None]
